FAERS Safety Report 6867728-5 (Version None)
Quarter: 2010Q3

REPORT INFORMATION
  Report Type: 
  Country: None (occurrence: None)
  Receive Date: 20100721
  Receipt Date: 20100721
  Transmission Date: 20110219
  Serious: Yes (Disabling)
  Sender: FDA-Public Use
  Company Number: None

PATIENT
  Age: 52 Year
  Sex: Female
  Weight: 86.1834 kg

DRUGS (1)
  1. SIMVASTATIN (ZOCOR) [Suspect]
     Indication: BLOOD CHOLESTEROL
     Dosage: 1 TABLET DAILY 047 MOUTH ORAL
     Route: 048

REACTIONS (3)
  - DIZZINESS [None]
  - MACULAR DEGENERATION [None]
  - MENTAL DISORDER [None]
